FAERS Safety Report 5338538-5 (Version None)
Quarter: 2007Q2

REPORT INFORMATION
  Report Type: 
  Country: None (occurrence: None)
  Receive Date: 20070530
  Receipt Date: 20070521
  Transmission Date: 20071010
  Serious: Yes (Other)
  Sender: FDA-Public Use
  Company Number: HQWYE300622MAY07

PATIENT
  Sex: Male

DRUGS (1)
  1. ADVIL [Suspect]
     Dosage: APPROXIMATELY 25 TABLETS
     Route: 048

REACTIONS (1)
  - INTENTIONAL OVERDOSE [None]
